FAERS Safety Report 8573899-5 (Version None)
Quarter: 2012Q3

REPORT INFORMATION
  Report Type: 
  Country: None (occurrence: None)
  Receive Date: 20120806
  Receipt Date: 20120505
  Transmission Date: 20120928
  Serious: No
  Sender: FDA-Public Use
  Company Number: US-GLAXOSMITHKLINE-A0976599A

PATIENT
  Age: 80 Year
  Sex: Female

DRUGS (3)
  1. VENTOLIN NEBULIZER [Concomitant]
  2. MULTIPLE MEDICATIONS [Concomitant]
  3. FLUTICASONE PROPIONATE [Suspect]
     Indication: ASTHMA
     Dosage: 2PUFF TWICE PER DAY
     Route: 055

REACTIONS (3)
  - FUNGAL OESOPHAGITIS [None]
  - GASTROINTESTINAL DISORDER [None]
  - GASTRITIS FUNGAL [None]
